FAERS Safety Report 18603896 (Version 2)
Quarter: 2020Q4

REPORT INFORMATION
  Report Type: Spontaneous
  Country: NO (occurrence: NO)
  Receive Date: 20201211
  Receipt Date: 20201223
  Transmission Date: 20210114
  Serious: Yes (Life-Threatening, Hospitalization, Disabling)
  Sender: FDA-Public Use
  Company Number: NO-JNJFOC-20201217233

PATIENT
  Age: 22 Year
  Sex: Female
  Weight: 53 kg

DRUGS (3)
  1. SIMPONI [Suspect]
     Active Substance: GOLIMUMAB
     Indication: FISTULA
     Dosage: ADDITIONAL INFO: L04AB06 - GOLIMUMAB,GOLIMUMAB: 100MG
     Route: 058
     Dates: start: 20140413, end: 20160511
  2. TRANE [Concomitant]
  3. SIMPONI [Suspect]
     Active Substance: GOLIMUMAB
     Indication: COLITIS ULCERATIVE
     Dosage: ADDITIONAL INFO: L04AB06 - GOLIMUMAB,GOLIMUMAB: 100MG;
     Route: 058
     Dates: start: 20140101, end: 20160101

REACTIONS (12)
  - Depression [Not Recovered/Not Resolved]
  - Derealisation [Not Recovered/Not Resolved]
  - Cataract [Not Recovered/Not Resolved]
  - Cutaneous symptom [Not Recovered/Not Resolved]
  - Dyspnoea [Unknown]
  - Skin exfoliation [Recovering/Resolving]
  - Glaucoma [Not Recovered/Not Resolved]
  - Mental impairment [Not Recovered/Not Resolved]
  - Volvulus repair [Unknown]
  - Dry skin [Recovering/Resolving]
  - Gastric disorder [Unknown]
  - Skin disorder [Recovering/Resolving]

NARRATIVE: CASE EVENT DATE: 20150101
